FAERS Safety Report 6997832-2 (Version None)
Quarter: 2010Q3

REPORT INFORMATION
  Report Type: 
  Country: None (occurrence: None)
  Receive Date: 20100920
  Receipt Date: 20100908
  Transmission Date: 20110219
  Serious: No
  Sender: FDA-Public Use
  Company Number: US-BIOGENIDEC-2010BI031274

PATIENT
  Age: 53 Year
  Sex: Female

DRUGS (2)
  1. AVONEX [Suspect]
     Indication: MULTIPLE SCLEROSIS
     Route: 030
     Dates: start: 20040516
  2. AVONEX [Suspect]
     Route: 030

REACTIONS (4)
  - ASTHENIA [None]
  - FATIGUE [None]
  - GENERAL SYMPTOM [None]
  - PYREXIA [None]
